FAERS Safety Report 15612492 (Version 1)
Quarter: 2018Q4

REPORT INFORMATION
  Report Type: Spontaneous
  Country: US (occurrence: US)
  Receive Date: 20181113
  Receipt Date: 20181113
  Transmission Date: 20190205
  Serious: Yes (Death)
  Sender: FDA-Public Use
  Company Number: PHHY2018US148790

PATIENT
  Age: 83 Year
  Sex: Male

DRUGS (1)
  1. DIGOXIN. [Suspect]
     Active Substance: DIGOXIN
     Indication: AMYLOIDOSIS
     Route: 065

REACTIONS (5)
  - Respiratory arrest [Fatal]
  - Cardiac failure [Fatal]
  - Hyperkalaemia [Fatal]
  - Ventricular tachycardia [Fatal]
  - Product use in unapproved indication [Unknown]
